FAERS Safety Report 20854914 (Version 1)
Quarter: 2022Q2

REPORT INFORMATION
  Report Type: Spontaneous
  Country: US (occurrence: US)
  Receive Date: 20220520
  Receipt Date: 20220520
  Transmission Date: 20220720
  Serious: Yes (Other)
  Sender: FDA-Public Use
  Company Number: US-TEVA-2022-US-2038383

PATIENT

DRUGS (1)
  1. CEPHALEXIN [Suspect]
     Active Substance: CEPHALEXIN
     Dosage: THREE DOSES A DAY FOR 5 DAYS
     Route: 065

REACTIONS (3)
  - Cellulitis [Unknown]
  - Swelling [Recovering/Resolving]
  - Drug ineffective [Unknown]
